FAERS Safety Report 6931360-5 (Version None)
Quarter: 2010Q3

REPORT INFORMATION
  Report Type: 
  Country: None (occurrence: None)
  Receive Date: 20100819
  Receipt Date: 20100810
  Transmission Date: 20110219
  Serious: Yes (Hospitalization)
  Sender: FDA-Public Use
  Company Number: US-US-EMD SERONO, INC.-7014110

PATIENT
  Sex: Female

DRUGS (2)
  1. REBIF [Suspect]
     Indication: PRODUCT USED FOR UNKNOWN INDICATION
     Route: 058
     Dates: start: 20080605
  2. REBIF [Suspect]
     Route: 058
     Dates: start: 20100809, end: 20100809

REACTIONS (3)
  - FEELING COLD [None]
  - PYREXIA [None]
  - TREMOR [None]
